FAERS Safety Report 5635640-5 (Version None)
Quarter: 2008Q1

REPORT INFORMATION
  Report Type: 
  Country: None (occurrence: None)
  Receive Date: 20080220
  Receipt Date: 20080212
  Transmission Date: 20080703
  Serious: Yes (Other)
  Sender: FDA-Public Use
  Company Number: GXKR2008DE01548

PATIENT
  Sex: Male

DRUGS (1)
  1. CAPTOHEXAL COMP (NGX)(CAPTOPRIL, HYDOROCHLOROTHIAZIDE) TABLET [Suspect]
     Dosage: ORAL
     Route: 048

REACTIONS (1)
  - CIRCULATORY COLLAPSE [None]
